FAERS Safety Report 7946343-6 (Version None)
Quarter: 2011Q4

REPORT INFORMATION
  Report Type: 
  Country: None (occurrence: None)
  Receive Date: 20111129
  Receipt Date: 20111122
  Transmission Date: 20120403
  Serious: Yes (Life-Threatening, Hospitalization, Disabling, Other)
  Sender: FDA-Public Use
  Company Number: US-ACTELION-A-NJ2011-57162

PATIENT

DRUGS (5)
  1. PREDNISONE TAB [Suspect]
  2. COUMADIN [Concomitant]
  3. CALCIUM CHANNEL BLOCKERS [Concomitant]
  4. TRACLEER [Suspect]
     Indication: PULMONARY ARTERIAL HYPERTENSION
     Dosage: 125 MG, BID
     Route: 048
     Dates: end: 20111101
  5. TRACLEER [Suspect]
     Dosage: 62.5 MG, BID
     Route: 048
     Dates: start: 20050512

REACTIONS (1)
  - PANCREATIC CARCINOMA [None]
